FAERS Safety Report 5576498-2 (Version None)
Quarter: 2007Q4

REPORT INFORMATION
  Report Type: 
  Country: None (occurrence: None)
  Receive Date: 20071228
  Receipt Date: 20071227
  Transmission Date: 20080405
  Serious: Yes (Hospitalization)
  Sender: FDA-Public Use
  Company Number: A0700591A

PATIENT
  Age: 68 Year
  Sex: Female

DRUGS (5)
  1. IMITREX [Suspect]
     Indication: MIGRAINE
     Dosage: 50MG AS REQUIRED
     Route: 048
     Dates: start: 20071215, end: 20071215
  2. PAMELOR [Concomitant]
  3. POTASSIUM CHLORIDE [Concomitant]
  4. CHOLINE MAG TRISAL [Concomitant]
  5. TRIAMTERENE [Concomitant]

REACTIONS (7)
  - BACK PAIN [None]
  - CHEST PAIN [None]
  - CONFUSIONAL STATE [None]
  - NECK PAIN [None]
  - PAIN IN EXTREMITY [None]
  - PAIN IN JAW [None]
  - VISION BLURRED [None]
